FAERS Safety Report 12090725 (Version 1)
Quarter: 2016Q1

REPORT INFORMATION
  Report Type: Spontaneous
  Country: IT (occurrence: IT)
  Receive Date: 20160218
  Receipt Date: 20160218
  Transmission Date: 20160526
  Serious: Yes (Hospitalization)
  Sender: FDA-Public Use
  Company Number: IT-TEVA-634615ACC

PATIENT
  Age: 71 Year
  Sex: Male

DRUGS (6)
  1. ALIMTA [Suspect]
     Active Substance: PEMETREXED DISODIUM
     Indication: LUNG NEOPLASM
     Dosage: 970 MG CYCLICAL
     Route: 042
     Dates: start: 20160116, end: 20160208
  2. IVEMEND [Concomitant]
     Active Substance: FOSAPREPITANT DIMEGLUMINE
     Indication: PREMEDICATION
     Dosage: 150 MG
     Route: 042
     Dates: start: 20160116, end: 20160116
  3. ONDANSETRON KABI - 2 MG/ML SOLUZIONE INIETTABILE [Concomitant]
     Indication: PREMEDICATION
     Dosage: 4 MG
     Route: 042
     Dates: start: 20160116, end: 20160116
  4. CISPLATINO TEVA - TEVA PHARMA B.V. [Suspect]
     Active Substance: CISPLATIN
     Indication: LUNG NEOPLASM
     Dosage: 145 MG CYCLICAL
     Route: 042
     Dates: start: 20160116, end: 20160116
  5. SOLDESAM - 4 MG/ML SOLUZIONE INIETTABILE [Concomitant]
     Active Substance: DEXAMETHASONE
     Indication: PREMEDICATION
     Dosage: 16 MG
     Route: 042
     Dates: start: 20160116, end: 20160116
  6. RANIDIL - 50 MG/5 ML SOLUZIONE INIETTABILE [Concomitant]
     Active Substance: RANITIDINE\RANITIDINE HYDROCHLORIDE
     Indication: PREMEDICATION
     Dosage: 50 MG
     Route: 042
     Dates: start: 20160116, end: 20160116

REACTIONS (1)
  - Atrial fibrillation [Recovered/Resolved]

NARRATIVE: CASE EVENT DATE: 20160116
